FAERS Safety Report 15713485 (Version 1)
Quarter: 2018Q4

REPORT INFORMATION
  Report Type: Spontaneous
  Country: IE (occurrence: IE)
  Receive Date: 20181212
  Receipt Date: 20181212
  Transmission Date: 20190205
  Serious: Yes (Other)
  Sender: FDA-Public Use
  Company Number: IE-CORDEN PHARMA LATINA S.P.A.-IE-2018COR000151

PATIENT

DRUGS (5)
  1. CISPLATIN. [Suspect]
     Active Substance: CISPLATIN
     Indication: NEUROBLASTOMA
     Dosage: UNK
     Route: 065
  2. CYCLOPHOSPHAMIDE ANHYDROUS. [Suspect]
     Active Substance: CYCLOPHOSPHAMIDE ANHYDROUS
     Indication: NEUROBLASTOMA
     Dosage: UNK
     Route: 065
  3. VINCRISTINE                        /00078802/ [Suspect]
     Active Substance: VINCRISTINE
     Indication: NEUROBLASTOMA
     Dosage: UNK
     Route: 065
  4. ETOPOSIDE. [Suspect]
     Active Substance: ETOPOSIDE
     Indication: NEUROBLASTOMA
     Dosage: UNK
     Route: 065
  5. CARBOPLATIN. [Suspect]
     Active Substance: CARBOPLATIN
     Indication: NEUROBLASTOMA
     Dosage: UNK
     Route: 065

REACTIONS (1)
  - Nephropathy toxic [Unknown]
